FAERS Safety Report 7004365-6 (Version None)
Quarter: 2010Q3

REPORT INFORMATION
  Report Type: 
  Country: None (occurrence: None)
  Receive Date: 20100921
  Receipt Date: 20100910
  Transmission Date: 20110219
  Serious: No
  Sender: FDA-Public Use
  Company Number: US-BIOGENIDEC-2010BI031732

PATIENT
  Age: 44 Year
  Sex: Female

DRUGS (2)
  1. TYSABRI [Suspect]
     Indication: MULTIPLE SCLEROSIS
     Route: 042
     Dates: start: 20041221
  2. TYSABRI [Suspect]
     Route: 042
     Dates: start: 20070821

REACTIONS (6)
  - BENIGN NEOPLASM OF ADRENAL GLAND [None]
  - GAIT DISTURBANCE [None]
  - PAIN IN EXTREMITY [None]
  - STRESS [None]
  - WEIGHT DECREASED [None]
  - WEIGHT INCREASED [None]
